FAERS Safety Report 5383784-8 (Version None)
Quarter: 2007Q3

REPORT INFORMATION
  Report Type: 
  Country: None (occurrence: None)
  Receive Date: 20070702
  Receipt Date: 20070514
  Transmission Date: 20080115
  Serious: No
  Sender: FDA-Public Use
  Company Number: 2007PV032932

PATIENT
  Age: 64 Year
  Sex: Female

DRUGS (5)
  1. SYMLIN [Suspect]
     Indication: TYPE 2 DIABETES MELLITUS
     Dosage: 120 MCG;BID;SC /  30 MCG;BID;SC
     Route: 058
     Dates: start: 20070201, end: 20070301
  2. SYMLIN [Suspect]
     Indication: TYPE 2 DIABETES MELLITUS
     Dosage: 120 MCG;BID;SC /  30 MCG;BID;SC
     Route: 058
     Dates: start: 20070301
  3. NOVOLOG [Concomitant]
  4. LANTUS [Concomitant]
  5. LOVENOX [Concomitant]

REACTIONS (3)
  - DRUG INEFFECTIVE [None]
  - INJECTION SITE DISCHARGE [None]
  - INJECTION SITE PAIN [None]
